FAERS Safety Report 12503847 (Version 2)
Quarter: 2016Q3

REPORT INFORMATION
  Report Type: Spontaneous
  Country: FR (occurrence: FR)
  Receive Date: 20160628
  Receipt Date: 20160707
  Transmission Date: 20161109
  Serious: Yes (Hospitalization, Other)
  Sender: FDA-Public Use
  Company Number: FR-PFIZER INC-2016316446

PATIENT
  Age: 69 Year
  Sex: Male

DRUGS (13)
  1. TRIATEC [Suspect]
     Active Substance: RAMIPRIL
     Dosage: 1 DF, DAILY
     Route: 048
     Dates: end: 20140720
  2. CARDENSIEL [Concomitant]
     Active Substance: BISOPROLOL FUMARATE
     Dosage: UNK
  3. ESOMEPRAZOLE [Suspect]
     Active Substance: ESOMEPRAZOLE
  4. LASILIX [Suspect]
     Active Substance: FUROSEMIDE
     Dosage: 2 DF, DAILY
     Route: 048
     Dates: start: 20140722, end: 20140804
  5. JANUMET [Suspect]
     Active Substance: METFORMIN HYDROCHLORIDE\SITAGLIPTIN PHOSPHATE
     Dosage: 1 DF, DAILY
     Route: 048
     Dates: start: 20140722, end: 20140804
  6. INEXIUM [Concomitant]
     Active Substance: ESOMEPRAZOLE
     Dosage: UNK
  7. TOPALGIC LP [Concomitant]
     Active Substance: TRAMADOL
     Dosage: UNK
  8. TRIATEC [Suspect]
     Active Substance: RAMIPRIL
     Dosage: 1 DF, DAILY
     Route: 048
     Dates: start: 20140722, end: 20140804
  9. LASILIX [Suspect]
     Active Substance: FUROSEMIDE
     Dosage: 2 DF, DAILY
     Route: 048
     Dates: start: 20140720, end: 20140720
  10. TAHOR [Concomitant]
     Active Substance: ATORVASTATIN CALCIUM
     Dosage: UNK
  11. JANUMET [Suspect]
     Active Substance: METFORMIN HYDROCHLORIDE\SITAGLIPTIN PHOSPHATE
     Dosage: 1 DF, DAILY
     Route: 048
     Dates: start: 20140720, end: 20140720
  12. LYRICA [Concomitant]
     Active Substance: PREGABALIN
     Dosage: UNK
  13. KARDEGIC [Concomitant]
     Active Substance: ASPIRIN LYSINE
     Dosage: UNK

REACTIONS (6)
  - Acute kidney injury [Recovered/Resolved]
  - Fall [Unknown]
  - Erysipelas [Unknown]
  - Hyperkalaemia [Recovered/Resolved]
  - Blood pressure decreased [Unknown]
  - Ulna fracture [Unknown]

NARRATIVE: CASE EVENT DATE: 20140720
